FAERS Safety Report 25638567 (Version 1)
Quarter: 2025Q3

REPORT INFORMATION
  Report Type: Spontaneous
  Country: US (occurrence: None)
  Receive Date: 20250801
  Receipt Date: 20250801
  Transmission Date: 20251021
  Serious: Yes (Other)
  Sender: FDA-CTU
  Company Number: None

PATIENT
  Age: 38 Year
  Sex: Male
  Weight: 128.25 kg

DRUGS (4)
  1. WEGOVY [Suspect]
     Active Substance: SEMAGLUTIDE
     Indication: Weight increased
     Route: 030
     Dates: start: 20241222, end: 20250629
  2. Aspiring 81mg [Concomitant]
  3. VYVANSE [Concomitant]
     Active Substance: LISDEXAMFETAMINE DIMESYLATE
  4. Synthroid 200mg [Concomitant]

REACTIONS (3)
  - Haematospermia [None]
  - Blood urine present [None]
  - Haematochezia [None]

NARRATIVE: CASE EVENT DATE: 20250201
